FAERS Safety Report 22104562 (Version 1)
Quarter: 2023Q1

REPORT INFORMATION
  Report Type: Spontaneous
  Country: US (occurrence: None)
  Receive Date: 20230316
  Receipt Date: 20230316
  Transmission Date: 20230417
  Serious: Yes (Hospitalization, Other)
  Sender: FDA-Public Use
  Company Number: 2023A058936

PATIENT

DRUGS (19)
  1. ROSUVASTATIN [Suspect]
     Active Substance: ROSUVASTATIN
     Route: 048
  2. NAPROXEN [Concomitant]
     Active Substance: NAPROXEN
     Indication: Osteoarthritis
     Dosage: 500 MG AT BEDTIME (OHS) ORALLY (PO)
     Route: 048
  3. NAPROXEN [Concomitant]
     Active Substance: NAPROXEN
     Indication: Arthralgia
     Dosage: 500 MG AT BEDTIME (OHS) ORALLY (PO)
     Route: 048
  4. ZYRTEC [Concomitant]
     Active Substance: CETIRIZINE HYDROCHLORIDE
     Dosage: 10 MG FOR SEASONAL ALLERGIES (BOTH SINCE 2000)
  5. ASPIRIN [Concomitant]
     Active Substance: ASPIRIN
     Indication: Myocardial infarction
     Dosage: 81 MG 1 TABLET ONCE DAILY (OD) PO
     Dates: start: 2017
  6. FLOMAX [Concomitant]
     Active Substance: TAMSULOSIN HYDROCHLORIDE
     Indication: Prostatomegaly
     Dosage: 4 MG 1 CAPSULE OD PO
     Dates: start: 2017
  7. LIVALO [Concomitant]
     Active Substance: PITAVASTATIN CALCIUM
     Indication: Hyperlipidaemia
     Dosage: 2 MG (MONDAY-WEDNESDAY-FRIDAY)
     Dates: start: 2017
  8. PEPCID [Concomitant]
     Active Substance: FAMOTIDINE
     Indication: Dyspepsia
     Dosage: 20 MG AS NEEDED (F^RN)
  9. PEPCID [Concomitant]
     Active Substance: FAMOTIDINE
     Indication: Dyspepsia
     Dosage: 20 MG AS NEEDED (F^RN)
  10. BENADRYL [Concomitant]
     Active Substance: DIPHENHYDRAMINE HYDROCHLORIDE
     Indication: Sleep disorder
     Dosage: 25 MG OHS PRN
     Dates: start: 2020
  11. COZAAR [Concomitant]
     Active Substance: LOSARTAN POTASSIUM
     Indication: Hypertension
     Dosage: 50 MG TABLET OD PO
  12. EVOLOCUMAB [Concomitant]
     Active Substance: EVOLOCUMAB
     Indication: Diabetes mellitus
     Dosage: 5 ML BIWEEKLY
     Dates: start: 20220519
  13. OCUVITE [Concomitant]
     Active Substance: VITAMINS
     Route: 048
  14. TYLENOL [Concomitant]
     Active Substance: ACETAMINOPHEN
     Dosage: 500 MG OHS
     Route: 048
  15. ALIROCUMAB [Concomitant]
     Active Substance: ALIROCUMAB
  16. NORVASC [Concomitant]
     Active Substance: AMLODIPINE BESYLATE
     Dosage: 5MG OD
     Route: 048
  17. LASIX [Concomitant]
     Active Substance: FUROSEMIDE
     Dosage: 40 MG OD PO
  18. GLUCOTROL XL [Concomitant]
     Active Substance: GLIPIZIDE
     Dosage: 5 MG QD PO
  19. VITAMINS [Concomitant]
     Active Substance: VITAMINS
     Dosage: 1 CAPSULE QD PO

REACTIONS (21)
  - Urinary retention [Unknown]
  - Benign prostatic hyperplasia [Unknown]
  - Cystitis [Unknown]
  - Dysuria [Unknown]
  - Glomerular filtration rate decreased [Unknown]
  - Haematuria [Unknown]
  - Abdominal pain lower [Unknown]
  - Cystitis radiation [Unknown]
  - Respiratory rate increased [Unknown]
  - Pollakiuria [Unknown]
  - Urinary tract infection [Unknown]
  - Urinary bladder haemorrhage [Unknown]
  - Lymphocyte count decreased [Unknown]
  - Neutrophil count increased [Unknown]
  - Blood pressure increased [Unknown]
  - Blood urea increased [Unknown]
  - Carbon dioxide decreased [Unknown]
  - Headache [Unknown]
  - Diarrhoea [Unknown]
  - Blood glucose increased [Unknown]
  - Prostatitis [Unknown]

NARRATIVE: CASE EVENT DATE: 20230213
